FAERS Safety Report 8258920-6 (Version None)
Quarter: 2012Q2

REPORT INFORMATION
  Report Type: 
  Country: None (occurrence: None)
  Receive Date: 20120404
  Receipt Date: 20120326
  Transmission Date: 20120825
  Serious: Yes (Hospitalization, Other)
  Sender: FDA-Public Use
  Company Number: US-ELI_LILLY_AND_COMPANY-US201202006645

PATIENT
  Sex: Female

DRUGS (15)
  1. FORTEO [Suspect]
     Dosage: 20 UG, QD
  2. CARVEDILOL [Concomitant]
  3. DIOVAN [Concomitant]
  4. CRESTOR [Concomitant]
  5. ALPRAZOLAM [Concomitant]
  6. DOXYCIN [Concomitant]
  7. FORTEO [Suspect]
     Indication: OSTEOPOROSIS
     Dosage: 20 UG, QD
     Dates: start: 20110501
  8. RENVELA [Concomitant]
  9. ARANESP [Concomitant]
     Indication: RENAL IMPAIRMENT
  10. FORTEO [Suspect]
     Dosage: 20 UG, QD
  11. CALCITRIOL [Concomitant]
  12. AMLODIPINE [Concomitant]
  13. FUROSEMIDE [Concomitant]
  14. NOVOLOG [Concomitant]
  15. GABAPENTIN [Concomitant]
     Dosage: UNK, EACH EVENING

REACTIONS (4)
  - OXYGEN SATURATION DECREASED [None]
  - RENAL FAILURE [None]
  - NEOPLASM SKIN [None]
  - BRONCHITIS [None]
